FAERS Safety Report 8774166 (Version 2)
Quarter: 2012Q4

REPORT INFORMATION
  Report Type: 
  Country: US (occurrence: US)
  Receive Date: 20120907
  Receipt Date: 20121011
  Transmission Date: 20130627
  Serious: No
  Sender: FDA-Public Use
  Company Number: US-ASTRAZENECA-2012SE60321

PATIENT
  Age: 17 Year
  Sex: Male
  Weight: 88.5 kg

DRUGS (2)
  1. SYMBICORT [Suspect]
     Indication: ASTHMA
     Dosage: 160/4.5MCG TWO PUFFS DAILY
     Route: 055
     Dates: start: 2008, end: 20120818
  2. PROAIR [Concomitant]

REACTIONS (3)
  - Asthma [Unknown]
  - Drug dose omission [Unknown]
  - Off label use [Unknown]
